FAERS Safety Report 5955227-4 (Version None)
Quarter: 2008Q4

REPORT INFORMATION
  Report Type: 
  Country: None (occurrence: None)
  Receive Date: 20081117
  Receipt Date: 20081104
  Transmission Date: 20090506
  Serious: Yes (Hospitalization)
  Sender: FDA-Public Use
  Company Number: US-ROCHE-443028

PATIENT
  Sex: Female

DRUGS (6)
  1. KLONOPIN [Suspect]
     Indication: DRUG USE FOR UNKNOWN INDICATION
     Route: 065
  2. BLINDED BEVACIZUMAB [Suspect]
     Indication: OVARIAN EPITHELIAL CANCER
     Dosage: GIVEN ON DAY ONE OF EACH THREE WEEKS CYCLE STARTING WITH CYCLE 2 X 5 CYCLES.
     Route: 042
  3. CARBOPLATIN [Suspect]
     Indication: OVARIAN EPITHELIAL CANCER
     Dosage: AUC 6 GIVEN OVER 30 MINUTES ON DAY ONE OF EACH THREE WEEKS CYCLE FOR SIX CYCLES.
     Route: 042
     Dates: start: 20051222
  4. PACLITAXEL [Suspect]
     Indication: OVARIAN EPITHELIAL CANCER
     Dosage: GIVEN OVER THREE HOURS ON DAY ONE OF EACH THREE WEEKS CYCLE FOR SIX CYCLES. CAN BE SUBSTITUTED BY D+
     Route: 042
     Dates: start: 20051222
  5. AMITRIPTYLINE HCL [Suspect]
     Indication: DRUG USE FOR UNKNOWN INDICATION
     Route: 065
  6. OXYCONTIN [Suspect]
     Indication: DRUG USE FOR UNKNOWN INDICATION
     Route: 065

REACTIONS (8)
  - ABDOMINAL PAIN [None]
  - CEREBRAL ISCHAEMIA [None]
  - CONFUSIONAL STATE [None]
  - DISEASE PROGRESSION [None]
  - HEADACHE [None]
  - MUSCULAR WEAKNESS [None]
  - SMALL INTESTINAL OBSTRUCTION [None]
  - VISION BLURRED [None]
